FAERS Safety Report 10260568 (Version 1)
Quarter: 2014Q2

REPORT INFORMATION
  Report Type: Spontaneous
  Country: US (occurrence: US)
  Receive Date: 20140626
  Receipt Date: 20140626
  Transmission Date: 20141212
  Serious: Yes (Other)
  Sender: FDA-Public Use
  Company Number: US-AMGEN INC.-USASP2014047082

PATIENT
  Age: 43 Year
  Sex: Male

DRUGS (1)
  1. ENBREL [Suspect]
     Indication: PRODUCT USED FOR UNKNOWN INDICATION
     Dosage: 50 MG, QWK
     Route: 065

REACTIONS (8)
  - Intervertebral disc disorder [Unknown]
  - Rheumatoid arthritis [Unknown]
  - Back injury [Unknown]
  - Musculoskeletal disorder [Unknown]
  - Clumsiness [Unknown]
  - Arthralgia [Unknown]
  - Joint swelling [Unknown]
  - Pelvic pain [Unknown]
